FAERS Safety Report 16584735 (Version 1)
Quarter: 2019Q3

REPORT INFORMATION
  Report Type: Spontaneous
  Country: US (occurrence: US)
  Receive Date: 20190603
  Receipt Date: 20190603
  Transmission Date: 20191004
  Serious: No
  Sender: FDA-Public Use
  Company Number: None

PATIENT
  Sex: Male

DRUGS (2)
  1. CARBOPLATIN MDV 600MG/60ML NOVAPLUS/HOSPIRA [Suspect]
     Active Substance: CARBOPLATIN
     Indication: NASOPHARYNGEAL CANCER
     Route: 042
     Dates: start: 20190131
  2. NEULASTA [Suspect]
     Active Substance: PEGFILGRASTIM
     Indication: NEUTROPENIA
     Route: 058
     Dates: start: 20190131

REACTIONS (4)
  - Pain in extremity [None]
  - Hypoaesthesia [None]
  - Dyspraxia [None]
  - Asthenia [None]
